FAERS Safety Report 10050317 (Version 1)
Quarter: 2014Q2

REPORT INFORMATION
  Report Type: Spontaneous
  Country: US (occurrence: NL)
  Receive Date: 20140401
  Receipt Date: 20140401
  Transmission Date: 20141212
  Serious: Yes (Other)
  Sender: FDA-Public Use
  Company Number: PHHY2014NL035720

PATIENT
  Sex: Female
  Weight: 70 kg

DRUGS (3)
  1. CLOMIPRAMINE [Suspect]
     Indication: DEPRESSION
     Dosage: 2 DF, QD (2 DRAGEE, QD)
     Dates: start: 20121026, end: 20121206
  2. XANAX [Concomitant]
     Dosage: 3 DF, QD (3DD1)
     Dates: start: 20120910
  3. CO APROVEL [Concomitant]
     Dosage: 1 DF, QD (1DD1)
     Dates: start: 20040413

REACTIONS (1)
  - Hepatitis toxic [Unknown]
